FAERS Safety Report 6791492-1 (Version None)
Quarter: 2010Q2

REPORT INFORMATION
  Report Type: 
  Country: None (occurrence: None)
  Receive Date: 20100624
  Receipt Date: 20080710
  Transmission Date: 20101027
  Serious: No
  Sender: FDA-Public Use
  Company Number: US-PFIZER INC-2008057578

PATIENT
  Age: 77 Year
  Sex: Female
  Weight: 72.57 kg

DRUGS (5)
  1. NIFEDIPINE [Suspect]
     Indication: HYPERTENSION
     Dates: start: 20080601
  2. OXYCODONE HCL [Concomitant]
     Dates: start: 20040101
  3. HYDROCHLOROTHIAZIDE [Concomitant]
     Dosage: 2 EVERY 1 WEEKS
     Dates: start: 20030101
  4. ALL OTHER THERAPEUTIC PRODUCTS [Concomitant]
  5. COZAAR [Concomitant]

REACTIONS (1)
  - OEDEMA PERIPHERAL [None]
